FAERS Safety Report 21765315 (Version 1)
Quarter: 2022Q4

REPORT INFORMATION
  Report Type: Report from Study
  Country: DO (occurrence: DO)
  Receive Date: 20221222
  Receipt Date: 20221222
  Transmission Date: 20230113
  Serious: Yes (Hospitalization, Other)
  Sender: FDA-Public Use
  Company Number: DO-JNJFOC-20221153155

PATIENT
  Age: 33 Year
  Sex: Male
  Weight: 50.9 kg

DRUGS (2)
  1. BORTEZOMIB [Suspect]
     Active Substance: BORTEZOMIB
     Indication: Plasma cell myeloma refractory
     Dosage: UNK
     Route: 065
     Dates: start: 20220120
  2. DARZALEX [Suspect]
     Active Substance: DARATUMUMAB
     Indication: Plasma cell myeloma refractory
     Dosage: 16 MILLIGRAM
     Route: 042
     Dates: start: 20220120

REACTIONS (3)
  - Bone marrow transplant [Recovered/Resolved]
  - Amoebiasis [Unknown]
  - Weight decreased [Unknown]

NARRATIVE: CASE EVENT DATE: 20221201
